FAERS Safety Report 13697322 (Version 2)
Quarter: 2017Q3

REPORT INFORMATION
  Report Type: Spontaneous
  Country: JP (occurrence: JP)
  Receive Date: 20170628
  Receipt Date: 20170711
  Transmission Date: 20171127
  Serious: Yes (Hospitalization)
  Sender: FDA-Public Use
  Company Number: JP-BAYER-2017-124578

PATIENT
  Sex: Male

DRUGS (4)
  1. PLETAAL [Suspect]
     Active Substance: CILOSTAZOL
     Dosage: UNK
     Route: 048
  2. BAYASPIRIN 100 MG [Suspect]
     Active Substance: ASPIRIN
     Indication: CEREBROVASCULAR ACCIDENT PROPHYLAXIS
     Dosage: 100 MG, QD
     Route: 048
     Dates: start: 2010
  3. GLUFAST [Concomitant]
     Active Substance: MITIGLINIDE
     Dosage: UNK
     Route: 048
  4. INSULIN [Concomitant]
     Active Substance: INSULIN NOS
     Dosage: UNK

REACTIONS (1)
  - Cerebral infarction [Not Recovered/Not Resolved]

NARRATIVE: CASE EVENT DATE: 20170620
